FAERS Safety Report 10011288 (Version 1)
Quarter: 2014Q1

REPORT INFORMATION
  Report Type: Report from Study
  Country: US (occurrence: US)
  Receive Date: 20140314
  Receipt Date: 20140314
  Transmission Date: 20141002
  Serious: Yes (Hospitalization)
  Sender: FDA-Public Use
  Company Number: US-JNJFOC-20140306397

PATIENT
  Age: 17 Year
  Sex: Male
  Weight: 50.2 kg

DRUGS (12)
  1. REMICADE [Suspect]
     Indication: CROHN^S DISEASE
     Route: 042
     Dates: start: 200505
  2. 5-ASA [Concomitant]
     Route: 048
  3. BUDESONIDE [Concomitant]
     Route: 065
  4. HUMIRA [Concomitant]
     Route: 065
     Dates: start: 200804
  5. GROWTH HORMONE [Concomitant]
     Route: 065
  6. INSULIN [Concomitant]
     Route: 065
  7. SINGULAIR [Concomitant]
     Route: 065
  8. ADDERALL [Concomitant]
     Route: 065
  9. FISH OIL [Concomitant]
     Route: 065
  10. VITAMIN D [Concomitant]
     Route: 065
  11. MECLIZINE [Concomitant]
     Route: 065
  12. FOLIC ACID [Concomitant]
     Route: 065

REACTIONS (1)
  - Crohn^s disease [Recovered/Resolved]
